FAERS Safety Report 9582448 (Version 1)
Quarter: 2013Q4

REPORT INFORMATION
  Report Type: Spontaneous
  Country: US (occurrence: US)
  Receive Date: 20131002
  Receipt Date: 20131002
  Transmission Date: 20140711
  Serious: No
  Sender: FDA-Public Use
  Company Number: US-AMGEN-USASP2013040363

PATIENT
  Age: 63 Year
  Sex: Female
  Weight: 87.08 kg

DRUGS (20)
  1. ENBREL [Suspect]
     Indication: PRODUCT USED FOR UNKNOWN INDICATION
     Dosage: 50 MG, QWK
     Route: 058
     Dates: start: 201302
  2. ALBUTEROL                          /00139501/ [Concomitant]
     Dosage: AER 90 MCG
  3. ECOTRIN [Concomitant]
     Dosage: 325 MG, EC
  4. CALCIUM [Concomitant]
     Dosage: 500 UNK, UNK
  5. FLEXERIL                           /00428402/ [Concomitant]
     Dosage: 5 MG, UNK
  6. FOLIC ACID [Concomitant]
     Dosage: UNK
  7. LIPITOR [Concomitant]
     Dosage: 10 MG, UNK
  8. LOSARTAN POTASSIUM [Concomitant]
     Dosage: 25 MG, UNK
  9. MELOXICAM [Concomitant]
     Dosage: 7.5 MG, UNK
  10. METHOTREXATE [Concomitant]
     Dosage: 2.5 MG, UNK
  11. NEXIUM                             /01479302/ [Concomitant]
     Dosage: 20 MG, UNK
  12. RESTASIS [Concomitant]
     Dosage: 0.05 %, UNK
  13. SALAGEN [Concomitant]
     Dosage: 5 MG, UNK
  14. SKELAXIN                           /00611501/ [Concomitant]
     Dosage: 800 MG, UNK
  15. SYMBICORT [Concomitant]
     Dosage: AER 80-4.5
  16. TRAZODONE [Concomitant]
     Dosage: 50 MG, UNK
  17. VENTOLIN HFA [Concomitant]
     Dosage: AER
  18. VITAMIN D                          /00107901/ [Concomitant]
     Dosage: 400 UNIT, UNK
  19. OMEGA-3                            /01866101/ [Concomitant]
     Dosage: UNK
  20. MULTIVITAMINS, PLAIN [Concomitant]
     Dosage: UNK

REACTIONS (2)
  - Oropharyngeal pain [Unknown]
  - Nasopharyngitis [Unknown]
